APPROVED DRUG PRODUCT: BRANCHAMIN 4%
Active Ingredient: AMINO ACIDS
Strength: 4% (4GM/100ML)
Dosage Form/Route: INJECTABLE;INJECTION
Application: N018678 | Product #001
Applicant: BAXTER HEALTHCARE CORP
Approved: Sep 28, 1984 | RLD: No | RS: No | Type: DISCN